FAERS Safety Report 21604088 (Version 1)
Quarter: 2022Q4

REPORT INFORMATION
  Report Type: Spontaneous
  Country: US (occurrence: None)
  Receive Date: 20221116
  Receipt Date: 20221116
  Transmission Date: 20230113
  Serious: No
  Sender: FDA-Public Use
  Company Number: None

PATIENT
  Sex: 0

DRUGS (1)
  1. ENTRESTO [Suspect]
     Active Substance: SACUBITRIL\VALSARTAN
     Dosage: FREQUENCY : TWICE A DAY;?QUANTITY: 60 TABLETS
     Route: 048
     Dates: start: 20221104

REACTIONS (1)
  - Fungal infection [None]

NARRATIVE: CASE EVENT DATE: 20221111
